FAERS Safety Report 7973517-0 (Version None)
Quarter: 2011Q4

REPORT INFORMATION
  Report Type: 
  Country: None (occurrence: None)
  Receive Date: 20111213
  Receipt Date: 20111206
  Transmission Date: 20120403
  Serious: Yes (Other)
  Sender: FDA-Public Use
  Company Number: FR-TEVA-313183ISR

PATIENT
  Age: 49 Year
  Sex: Male

DRUGS (3)
  1. PHENOBARBITAL TAB [Suspect]
  2. SERTRALINE HYDROCHLORIDE [Suspect]
  3. BROMAZEPAM [Suspect]

REACTIONS (1)
  - HOMICIDE [None]
